FAERS Safety Report 13814367 (Version 1)
Quarter: 2017Q3

REPORT INFORMATION
  Report Type: Spontaneous
  Country: US (occurrence: US)
  Receive Date: 20170728
  Receipt Date: 20170728
  Transmission Date: 20171127
  Serious: Yes (Disabling)
  Sender: FDA-Public Use
  Company Number: None

PATIENT
  Age: 77 Year
  Sex: Female
  Weight: 94.05 kg

DRUGS (9)
  1. BAYER ASPIRIN [Concomitant]
     Active Substance: ASPIRIN
  2. ATORVASTATIN 40 MG TABLET APO [Suspect]
     Active Substance: ATORVASTATIN CALCIUM
     Indication: BLOOD CHOLESTEROL INCREASED
     Dosage: QUANTITY:30 TABLET(S); AT BEDTIME?
     Route: 048
     Dates: start: 20170705, end: 20170726
  3. METFORMIN [Concomitant]
     Active Substance: METFORMIN HYDROCHLORIDE
  4. PIOGLITAZONE HCL [Concomitant]
     Active Substance: PIOGLITAZONE
  5. ISOBRIDE MN [Concomitant]
  6. LATANOPROST. [Concomitant]
     Active Substance: LATANOPROST
  7. METOPROLOL SUCC [Concomitant]
     Active Substance: METOPROLOL SUCCINATE
  8. LISINOPRIL. [Concomitant]
     Active Substance: LISINOPRIL
  9. LANTUS [Concomitant]
     Active Substance: INSULIN GLARGINE

REACTIONS (5)
  - Back pain [None]
  - Movement disorder [None]
  - Myalgia [None]
  - Muscle spasms [None]
  - Urine output decreased [None]

NARRATIVE: CASE EVENT DATE: 20170725
